FAERS Safety Report 5199668-4 (Version None)
Quarter: 2007Q1

REPORT INFORMATION
  Report Type: 
  Country: None (occurrence: None)
  Receive Date: 20070105
  Receipt Date: 20061222
  Transmission Date: 20070707
  Serious: Yes (Other)
  Sender: FDA-Public Use
  Company Number: NL-AMGEN-UK200136

PATIENT

DRUGS (1)
  1. KINERET [Suspect]
     Indication: PRE-EXISTING DISEASE
     Route: 065

REACTIONS (2)
  - ANTIBODY TEST POSITIVE [None]
  - THERAPEUTIC RESPONSE DECREASED [None]
